FAERS Safety Report 16990405 (Version 7)
Quarter: 2020Q2

REPORT INFORMATION
  Report Type: Spontaneous
  Country: US (occurrence: US)
  Receive Date: 20191104
  Receipt Date: 20200401
  Transmission Date: 20200713
  Serious: Yes (Hospitalization, Other)
  Sender: FDA-Public Use
  Company Number: US-PFIZER INC-2019475457

PATIENT
  Age: 72 Year
  Sex: Female
  Weight: 77 kg

DRUGS (2)
  1. LIPITOR [Suspect]
     Active Substance: ATORVASTATIN CALCIUM
     Indication: BLOOD CHOLESTEROL INCREASED
     Dosage: 80 MG, ONCE DAILY
     Route: 048
     Dates: start: 200810
  2. LIPITOR [Suspect]
     Active Substance: ATORVASTATIN CALCIUM
     Indication: DYSLIPIDAEMIA
     Dosage: 80 MG, 2X/DAY
     Dates: start: 2008

REACTIONS (9)
  - Back disorder [Recovered/Resolved]
  - Diabetes mellitus [Not Recovered/Not Resolved]
  - Mobility decreased [Not Recovered/Not Resolved]
  - Muscular weakness [Not Recovered/Not Resolved]
  - Overdose [Unknown]
  - Blood creatine phosphokinase increased [Not Recovered/Not Resolved]
  - Myopathy [Not Recovered/Not Resolved]
  - Enzyme abnormality [Not Recovered/Not Resolved]
  - Gait disturbance [Not Recovered/Not Resolved]

NARRATIVE: CASE EVENT DATE: 2010
